FAERS Safety Report 9886020 (Version 3)
Quarter: 2014Q2

REPORT INFORMATION
  Report Type: Report from Study
  Country: JP (occurrence: JP)
  Receive Date: 20140210
  Receipt Date: 20140429
  Transmission Date: 20141212
  Serious: Yes (Other)
  Sender: FDA-Public Use
  Company Number: JP-GLAXOSMITHKLINE-B0967709A

PATIENT
  Age: 50 Year
  Sex: Female
  Weight: 41 kg

DRUGS (5)
  1. TYKERB [Suspect]
     Indication: BREAST CANCER
     Route: 048
     Dates: start: 20130401, end: 20130512
  2. XELODA [Concomitant]
     Indication: BREAST CANCER
     Route: 048
     Dates: start: 20121105, end: 20130430
  3. HYSRON-H [Concomitant]
     Indication: BREAST CANCER
     Route: 048
     Dates: start: 20130325, end: 20130515
  4. HYPEN [Concomitant]
     Indication: CANCER PAIN
     Route: 048
     Dates: start: 20121126, end: 20130515
  5. ZOMETA [Concomitant]
     Indication: CANCER PAIN
     Route: 042
     Dates: start: 20111226, end: 20130702

REACTIONS (4)
  - Hepatic function abnormal [Not Recovered/Not Resolved]
  - Decreased appetite [Not Recovered/Not Resolved]
  - Diarrhoea [Recovered/Resolved]
  - Pyrexia [Recovered/Resolved]
